FAERS Safety Report 5008860-0 (Version None)
Quarter: 2006Q2

REPORT INFORMATION
  Report Type: 
  Country: None (occurrence: None)
  Receive Date: 20060519
  Receipt Date: 20060503
  Transmission Date: 20061013
  Serious: Yes (Death)
  Sender: FDA-Public Use
  Company Number: PHEH2006US05844

PATIENT
  Age: 76 Year
  Sex: Female
  Weight: 50.3493 kg

DRUGS (12)
  1. VISUDYNE [Suspect]
     Indication: MACULAR DEGENERATION
     Dates: start: 20060502, end: 20060502
  2. FLUORESCEIN [Concomitant]
  3. HYZAAR [Concomitant]
  4. AXID [Concomitant]
  5. ASACOL [Concomitant]
  6. INDERAL [Concomitant]
  7. CALCIUM GLUCONATE [Concomitant]
  8. ICAPS/CENTRUM MULTIVITAMINS [Concomitant]
  9. HYOSCYAMINE [Concomitant]
  10. ACTONEL [Concomitant]
  11. HYDROCHLOROTHIAZIDE [Concomitant]
  12. ASPIRIN [Concomitant]

REACTIONS (5)
  - ACUTE MYOCARDIAL INFARCTION [None]
  - CARDIO-RESPIRATORY ARREST [None]
  - INFUSION SITE PAIN [None]
  - INJECTION SITE EXTRAVASATION [None]
  - VENOUS INJURY [None]
